FAERS Safety Report 8466776-1 (Version None)
Quarter: 2012Q2

REPORT INFORMATION
  Report Type: 
  Country: None (occurrence: None)
  Receive Date: 20120626
  Receipt Date: 20120622
  Transmission Date: 20120825
  Serious: Yes (Death)
  Sender: FDA-Public Use
  Company Number: US-CELGENEUS-163-21880-12053672

PATIENT
  Sex: Male

DRUGS (15)
  1. ASPIRIN [Concomitant]
     Dosage: 325 MILLIGRAM
     Route: 048
  2. FLOMAX [Concomitant]
     Dosage: .4 MILLIGRAM
     Route: 048
  3. REVLIMID [Suspect]
     Dosage: 10 MILLIGRAM
     Route: 048
     Dates: start: 20101101, end: 20120501
  4. PANTOPRAZOLE [Concomitant]
     Dosage: 20 MILLIGRAM
     Route: 048
  5. VITAMIN D [Concomitant]
     Dosage: 2000 UNIT
     Route: 048
  6. REVLIMID [Suspect]
     Indication: MULTIPLE MYELOMA
     Dosage: 5 MILLIGRAM
     Route: 048
     Dates: start: 20080930, end: 20101101
  7. ZOCOR [Concomitant]
     Dosage: 20 MILLIGRAM
     Route: 048
  8. DEXAMETHASONE [Concomitant]
     Dosage: 4 MILLIGRAM
     Route: 048
     Dates: start: 20120501
  9. CO Q-10 [Concomitant]
     Dosage: 300 MILLIGRAM
     Route: 048
  10. FUROSEMIDE [Concomitant]
     Dosage: 20 MILLIGRAM
     Route: 048
  11. METHADONE HCL [Concomitant]
     Dosage: 10 MILLIGRAM
     Route: 048
  12. NIASPAN [Concomitant]
     Dosage: 1000
     Route: 048
  13. PLAVIX [Concomitant]
     Dosage: 75 MILLIGRAM
     Route: 048
  14. ASCORBIC ACID [Concomitant]
     Dosage: 1000 MILLIGRAM
     Route: 048
  15. FISH OIL [Concomitant]
     Route: 048

REACTIONS (3)
  - SEPTIC SHOCK [None]
  - MULTIPLE MYELOMA [None]
  - URINARY TRACT INFECTION [None]
